FAERS Safety Report 8701917 (Version 5)
Quarter: 2013Q4

REPORT INFORMATION
  Report Type: Spontaneous
  Country: US (occurrence: US)
  Receive Date: 20120803
  Receipt Date: 20131118
  Transmission Date: 20140711
  Serious: Yes (Hospitalization, Other)
  Sender: FDA-Public Use
  Company Number: US-009507513-1207USA009302

PATIENT
  Sex: Female
  Weight: 62.59 kg

DRUGS (4)
  1. FOSAMAX [Suspect]
     Indication: OSTEOPOROSIS
     Dosage: 70 MG, QW
     Route: 048
     Dates: start: 200403
  2. FOSAMAX [Suspect]
     Dosage: UNK
     Route: 048
     Dates: start: 2002
  3. ALENDRONATE SODIUM [Suspect]
     Indication: OSTEOPOROSIS
     Dosage: 70 MG, QW
     Route: 048
     Dates: start: 200908, end: 201005
  4. NEXIUM [Concomitant]
     Dosage: UNK
     Dates: start: 2001

REACTIONS (47)
  - Open reduction of fracture [Unknown]
  - Atrioventricular block second degree [Unknown]
  - Cardiac pacemaker insertion [Unknown]
  - Cardiac pacemaker insertion [Unknown]
  - Rotator cuff repair [Unknown]
  - Syncope [Unknown]
  - Hypotension [Unknown]
  - Spinal nerve stimulator implantation [Unknown]
  - Myositis [Unknown]
  - Cholecystectomy [Unknown]
  - Myalgia [Unknown]
  - Femur fracture [Unknown]
  - Vitamin D deficiency [Unknown]
  - Rib fracture [Unknown]
  - Rib fracture [Unknown]
  - Low turnover osteopathy [Unknown]
  - Hypoparathyroidism [Unknown]
  - Hypothyroidism [Unknown]
  - Hernia repair [Unknown]
  - Hypercholesterolaemia [Unknown]
  - Hypertension [Unknown]
  - Intervertebral disc degeneration [Unknown]
  - Nephrolithiasis [Unknown]
  - Coccydynia [Not Recovered/Not Resolved]
  - Urinary incontinence [Unknown]
  - Hypertonic bladder [Unknown]
  - Hernia repair [Unknown]
  - Depression [Not Recovered/Not Resolved]
  - Coccygectomy [Unknown]
  - Liver function test abnormal [Unknown]
  - Fatigue [Unknown]
  - Asthma [Unknown]
  - Nephrolithiasis [Unknown]
  - Insomnia [Unknown]
  - Osteoarthritis [Unknown]
  - Coronary artery disease [Unknown]
  - Hernia repair [Unknown]
  - Adverse event [Unknown]
  - Cough [Unknown]
  - Lumbar radiculopathy [Unknown]
  - Arthritis [Unknown]
  - Muscular weakness [Unknown]
  - Back pain [Not Recovered/Not Resolved]
  - Arthralgia [Unknown]
  - Gastrooesophageal reflux disease [Not Recovered/Not Resolved]
  - Dizziness [Not Recovered/Not Resolved]
  - Drug ineffective [Unknown]
